FAERS Safety Report 13825202 (Version 2)
Quarter: 2017Q3

REPORT INFORMATION
  Report Type: Spontaneous
  Country: US (occurrence: US)
  Receive Date: 20170802
  Receipt Date: 20170905
  Transmission Date: 20171127
  Serious: Yes (Death, Hospitalization)
  Sender: FDA-Public Use
  Company Number: US-JNJFOC-20170801280

PATIENT
  Age: 86 Year
  Sex: Female

DRUGS (10)
  1. IMBRUVICA [Suspect]
     Active Substance: IBRUTINIB
     Indication: CHRONIC LYMPHOCYTIC LEUKAEMIA
     Dosage: 420 MG, QD
     Route: 048
     Dates: start: 20170125
  2. LISINOPRIL. [Concomitant]
     Active Substance: LISINOPRIL
  3. CITRACAL [Concomitant]
     Active Substance: CALCIUM CITRATE
  4. METFORMIN [Concomitant]
     Active Substance: METFORMIN HYDROCHLORIDE
  5. FENOFIBRATE. [Concomitant]
     Active Substance: FENOFIBRATE
  6. IRON [Concomitant]
     Active Substance: IRON
  7. FAMOTIDINE. [Concomitant]
     Active Substance: FAMOTIDINE
  8. ASA [Concomitant]
     Active Substance: ASPIRIN
  9. ECOTRIN [Concomitant]
     Active Substance: ASPIRIN
  10. NORVASC [Concomitant]
     Active Substance: AMLODIPINE BESYLATE

REACTIONS (1)
  - Disease progression [Fatal]

NARRATIVE: CASE EVENT DATE: 20170322
